FAERS Safety Report 25730895 (Version 1)
Quarter: 2025Q3

REPORT INFORMATION
  Report Type: Report from Study
  Country: PH (occurrence: PH)
  Receive Date: 20250827
  Receipt Date: 20250827
  Transmission Date: 20251020
  Serious: Yes (Death)
  Sender: OTSUKA
  Company Number: PH-OTSUKA-2025_020781

PATIENT

DRUGS (3)
  1. TOLVAPTAN [Suspect]
     Active Substance: TOLVAPTAN
     Indication: Arterial occlusive disease
     Route: 048
     Dates: start: 202406
  2. TOLVAPTAN [Suspect]
     Active Substance: TOLVAPTAN
     Indication: Cardiomegaly
     Dosage: 0.5 DF, TIW (15 MG 1/2 (HALF) TABLET EVERY MWF)
     Route: 065
  3. TOLVAPTAN [Suspect]
     Active Substance: TOLVAPTAN
     Route: 065

REACTIONS (2)
  - Cardiac disorder [Fatal]
  - Coronary artery occlusion [Fatal]

NARRATIVE: CASE EVENT DATE: 20240101
